FAERS Safety Report 8406972-2 (Version None)
Quarter: 2012Q2

REPORT INFORMATION
  Report Type: 
  Country: None (occurrence: None)
  Receive Date: 20120604
  Receipt Date: 20120524
  Transmission Date: 20120825
  Serious: Yes (Other)
  Sender: FDA-Public Use
  Company Number: JP-SANOFI-AVENTIS-2012SA029640

PATIENT
  Age: 64 Year
  Sex: Male
  Weight: 61.15 kg

DRUGS (5)
  1. TAXOTERE [Suspect]
     Dosage: EVERY 4 WEEKS
     Route: 042
     Dates: start: 20100305
  2. LEUPROLIDE ACETATE [Concomitant]
     Dosage: 3.75 MG/24H EVERY FOUR WEEKS
     Dates: start: 20080121
  3. ESTRACYT [Concomitant]
     Indication: PROSTATE CANCER
     Route: 048
     Dates: start: 20110509
  4. ZOMETA [Concomitant]
     Indication: PREMEDICATION
     Dosage: EVERY ADMINISTRATION OF TAXOTERE
     Route: 042
  5. DEXAMETHASONE [Concomitant]
     Indication: PREMEDICATION
     Dosage: DAILY DOSE, 6.6 MG/DAYEVERY ADMINISTRATION OF TAXOTERE

REACTIONS (2)
  - MACULAR OEDEMA [None]
  - VISUAL ACUITY REDUCED [None]
